FAERS Safety Report 10241706 (Version 1)
Quarter: 2014Q1

REPORT INFORMATION
  Report Type: Spontaneous
  Country: US (occurrence: None)
  Receive Date: 20140306
  Receipt Date: 20140306
  Transmission Date: 20141002
  Serious: Yes (Hospitalization)
  Sender: FDA-Public Use
  Company Number: 163-21880-13122381

PATIENT
  Age: 59 Year
  Sex: Male

DRUGS (4)
  1. REVLIMID (LENALIDOMIDE) (25 MILLIGRAM, CAPSULES) [Suspect]
     Indication: PLASMACYTOMA
     Route: 048
     Dates: start: 20130917
  2. MAGNESIUM CHLORIDE (ANHYDROUS) (UNKNOWN) [Concomitant]
  3. LOSARTAN POTASSIUM-HCTZ (HYZAAR (UNKNOWN) [Concomitant]
  4. HYDROCODONE-ACETAMINOPHEN (VICODIN) (UNKNOWN) [Concomitant]

REACTIONS (1)
  - Deep vein thrombosis [None]
